FAERS Safety Report 4431033-7 (Version None)
Quarter: 2004Q3

REPORT INFORMATION
  Report Type: 
  Country: None (occurrence: None)
  Receive Date: 20040824
  Receipt Date: 20040412
  Transmission Date: 20050211
  Serious: No
  Sender: FDA-Public Use
  Company Number: US-BRISTOL-MYERS SQUIBB COMPANY-12557393

PATIENT
  Age: 32 Year
  Sex: Female
  Weight: 69 kg

DRUGS (3)
  1. MEGACE [Suspect]
     Indication: ENDOMETRIOSIS
     Route: 048
     Dates: start: 20040325
  2. IRON [Concomitant]
     Dates: start: 20040408, end: 20040409
  3. MULTIVITAMIN [Concomitant]

REACTIONS (4)
  - DIZZINESS [None]
  - DYSPNOEA [None]
  - FAECES DISCOLOURED [None]
  - VAGINAL HAEMORRHAGE [None]
